FAERS Safety Report 9980644 (Version 1)
Quarter: 2014Q1

REPORT INFORMATION
  Report Type: Spontaneous
  Country: JP (occurrence: JP)
  Receive Date: 20140307
  Receipt Date: 20140307
  Transmission Date: 20141002
  Serious: Yes (Other)
  Sender: FDA-Public Use
  Company Number: 2014SP001169

PATIENT
  Age: 67 Year
  Sex: Female

DRUGS (4)
  1. CISPLATIN [Suspect]
     Indication: GASTRIC CANCER STAGE III
  2. GIMERACIL [Suspect]
     Indication: GASTRIC CANCER STAGE III
  3. OTERACIL POTASSIUM [Suspect]
     Indication: GASTRIC CANCER STAGE III
  4. TEGAFUR [Suspect]
     Indication: GASTRIC CANCER STAGE III

REACTIONS (7)
  - Trousseau^s syndrome [Unknown]
  - Balance disorder [Unknown]
  - Dizziness [Unknown]
  - Cerebellar ataxia [Recovered/Resolved]
  - Nystagmus [Unknown]
  - VIIth nerve paralysis [Unknown]
  - Cerebral infarction [Recovered/Resolved]
